FAERS Safety Report 19571848 (Version 1)
Quarter: 2021Q3

REPORT INFORMATION
  Report Type: Spontaneous
  Country: US (occurrence: US)
  Receive Date: 20210715
  Receipt Date: 20210715
  Transmission Date: 20211014
  Serious: No
  Sender: FDA-Public Use
  Company Number: US-JNJFOC-20210729220

PATIENT
  Age: 30 Year
  Sex: Male

DRUGS (2)
  1. CABOTEGRAVIR [Suspect]
     Active Substance: CABOTEGRAVIR
     Indication: HIV INFECTION
     Dosage: UNK
     Route: 042
     Dates: start: 201909
  2. RILPIVIRINE [Suspect]
     Active Substance: RILPIVIRINE
     Indication: HIV INFECTION
     Dosage: UNK
     Route: 042
     Dates: start: 201909

REACTIONS (4)
  - Injection site deformation [Not Recovered/Not Resolved]
  - Injection site pain [Not Recovered/Not Resolved]
  - Appendicectomy [Unknown]
  - Gait inability [Unknown]

NARRATIVE: CASE EVENT DATE: 201909
